FAERS Safety Report 26141095 (Version 1)
Quarter: 2025Q4

REPORT INFORMATION
  Report Type: Spontaneous
  Country: US (occurrence: None)
  Receive Date: 20251210
  Receipt Date: 20251210
  Transmission Date: 20260117
  Serious: Yes (Hospitalization, Other)
  Sender: UCB
  Company Number: US-UCBSA-2025078563

PATIENT
  Age: 2 Year

DRUGS (5)
  1. KEPPRA [Suspect]
     Active Substance: LEVETIRACETAM
     Indication: Lennox-Gastaut syndrome
     Dosage: 3.75 MILLILITER, 2X/DAY (BID)
  2. KEPPRA [Suspect]
     Active Substance: LEVETIRACETAM
     Indication: Off label use
     Dosage: 5 MILLILITER, 2X/DAY (BID)
  3. KEPPRA [Suspect]
     Active Substance: LEVETIRACETAM
     Dosage: 6 MILLILITER, 2X/DAY (BID)
  4. VITAMIN B6 [Concomitant]
     Active Substance: PYRIDOXINE HYDROCHLORIDE
     Indication: Product used for unknown indication
     Dosage: 25 MILLIGRAM, ONCE DAILY (QD)
  5. VITAMIN B6 [Concomitant]
     Active Substance: PYRIDOXINE HYDROCHLORIDE
     Dosage: 50 MILLIGRAM, ONCE DAILY (QD)

REACTIONS (9)
  - Hospitalisation [Unknown]
  - Seizure [Recovering/Resolving]
  - Chorea [Unknown]
  - Constipation [Unknown]
  - Respiratory tract congestion [Unknown]
  - Irritability [Recovering/Resolving]
  - Tachypnoea [Unknown]
  - Drug ineffective [Unknown]
  - Off label use [Unknown]
